FAERS Safety Report 8884371 (Version 1)
Quarter: 2012Q4

REPORT INFORMATION
  Report Type: 
  Country: US (occurrence: US)
  Receive Date: 20121102
  Receipt Date: 20121102
  Transmission Date: 20130627
  Serious: No
  Sender: FDA-Public Use
  Company Number: US-ASTRAZENECA-2012SE22214

PATIENT
  Age: 73 Year
  Sex: Male
  Weight: 111.1 kg

DRUGS (1)
  1. CRESTOR [Suspect]
     Route: 048

REACTIONS (3)
  - Myalgia [Not Recovered/Not Resolved]
  - Intentional drug misuse [Unknown]
  - Intentional drug misuse [Unknown]
